FAERS Safety Report 6568069-6 (Version None)
Quarter: 2010Q1

REPORT INFORMATION
  Report Type: 
  Country: None (occurrence: None)
  Receive Date: 20100129
  Receipt Date: 20100113
  Transmission Date: 20100710
  Serious: Yes (Death, Hospitalization)
  Sender: FDA-Public Use
  Company Number: 2009AC000485

PATIENT
  Age: 59 Year
  Sex: Male

DRUGS (2)
  1. DIGOXIN [Suspect]
     Dosage: 125 MCG;QD;PO
     Route: 048
     Dates: start: 20061101
  2. COUMADIN [Concomitant]

REACTIONS (11)
  - AORTIC VALVE INCOMPETENCE [None]
  - ATRIAL FLUTTER [None]
  - CARDIAC FAILURE CONGESTIVE [None]
  - CONDITION AGGRAVATED [None]
  - CONGESTIVE CARDIOMYOPATHY [None]
  - INJURY [None]
  - LEFT VENTRICULAR DYSFUNCTION [None]
  - MITRAL VALVE INCOMPETENCE [None]
  - OEDEMA PERIPHERAL [None]
  - TRICUSPID VALVE INCOMPETENCE [None]
  - TROPONIN INCREASED [None]
